FAERS Safety Report 21788441 (Version 1)
Quarter: 2022Q4

REPORT INFORMATION
  Report Type: Spontaneous
  Country: GB (occurrence: GB)
  Receive Date: 20221228
  Receipt Date: 20221228
  Transmission Date: 20230112
  Serious: Yes (Other)
  Sender: FDA-Public Use
  Company Number: GB-PFIZER INC-PV202200128036

PATIENT
  Age: 62 Year
  Sex: Female

DRUGS (2)
  1. GENOTROPIN [Suspect]
     Active Substance: SOMATROPIN
     Dosage: 0.2 MG WEEKDAY
  2. GENOTROPIN [Suspect]
     Active Substance: SOMATROPIN
     Dosage: 0.3 MG WEEKEND

REACTIONS (4)
  - Drug withdrawal syndrome [Unknown]
  - Suicidal ideation [Unknown]
  - Product dose omission in error [Unknown]
  - Product prescribing issue [Unknown]
